FAERS Safety Report 4374563-9 (Version None)
Quarter: 2004Q2

REPORT INFORMATION
  Report Type: 
  Country: None (occurrence: None)
  Receive Date: 20040608
  Receipt Date: 20040608
  Transmission Date: 20050107
  Serious: No
  Sender: FDA-Public Use
  Company Number: None

PATIENT
  Age: 74 Year
  Sex: Female

DRUGS (1)
  1. DURAGESIC [Suspect]
     Dosage: APPLY ONC Q72 HRS
     Dates: start: 19990501, end: 20040529

REACTIONS (4)
  - CONDITION AGGRAVATED [None]
  - DRUG EFFECT DECREASED [None]
  - PAIN [None]
  - PHARMACEUTICAL PRODUCT COMPLAINT [None]
